FAERS Safety Report 5264864-4 (Version None)
Quarter: 2007Q1

REPORT INFORMATION
  Report Type: 
  Country: None (occurrence: None)
  Receive Date: 20070314
  Receipt Date: 20070228
  Transmission Date: 20070707
  Serious: Yes (Other)
  Sender: FDA-Public Use
  Company Number: US-ELI_LILLY_AND_COMPANY-US200702004974

PATIENT
  Age: 76 Year
  Sex: Female

DRUGS (4)
  1. FORTEO [Suspect]
     Dosage: 20 UG, DAILY (1/D)
     Dates: start: 20061101, end: 20070301
  2. EVISTA [Suspect]
  3. ENBREL [Concomitant]
  4. TREXALL [Concomitant]

REACTIONS (1)
  - VAGINAL CANCER RECURRENT [None]
